FAERS Safety Report 9617128 (Version 1)
Quarter: 2013Q4

REPORT INFORMATION
  Report Type: Report from Study
  Country: US (occurrence: US)
  Receive Date: 20131011
  Receipt Date: 20131011
  Transmission Date: 20140711
  Serious: Yes (Hospitalization)
  Sender: FDA-Public Use
  Company Number: US-ABBVIE-13P-163-1154532-00

PATIENT
  Age: 53 Year
  Sex: Female

DRUGS (10)
  1. HUMIRA [Suspect]
     Indication: RHEUMATOID ARTHRITIS
     Route: 058
     Dates: start: 20130228, end: 20130910
  2. PLAQUENIL [Concomitant]
     Indication: PRODUCT USED FOR UNKNOWN INDICATION
  3. MEDROL [Concomitant]
     Indication: PRODUCT USED FOR UNKNOWN INDICATION
  4. OMEPRAZOLE [Concomitant]
     Indication: PRODUCT USED FOR UNKNOWN INDICATION
  5. HCTZ [Concomitant]
     Indication: PRODUCT USED FOR UNKNOWN INDICATION
  6. LEFLUNOMIDE [Concomitant]
     Indication: PRODUCT USED FOR UNKNOWN INDICATION
  7. ADVAIR DISKUS [Concomitant]
     Indication: PRODUCT USED FOR UNKNOWN INDICATION
  8. ALBUTEROL [Concomitant]
     Indication: PRODUCT USED FOR UNKNOWN INDICATION
  9. VENTOLIN [Concomitant]
     Indication: PRODUCT USED FOR UNKNOWN INDICATION
  10. NORCO [Concomitant]
     Indication: PRODUCT USED FOR UNKNOWN INDICATION

REACTIONS (9)
  - Dizziness [Unknown]
  - Peripheral coldness [Unknown]
  - Dyspnoea [Recovered/Resolved]
  - Pulmonary mass [Unknown]
  - Rash [Unknown]
  - Pain [Unknown]
  - Fibromyalgia [Unknown]
  - Rheumatoid arthritis [Unknown]
  - Pain [Unknown]
